FAERS Safety Report 22612088 (Version 1)
Quarter: 2023Q2

REPORT INFORMATION
  Report Type: Spontaneous
  Country: US (occurrence: US)
  Receive Date: 20230617
  Receipt Date: 20230617
  Transmission Date: 20230721
  Serious: Yes (Hospitalization)
  Sender: FDA-Public Use
  Company Number: US-AMNEAL PHARMACEUTICALS-2023-AMRX-02081

PATIENT
  Sex: Male
  Weight: 8.707 kg

DRUGS (2)
  1. VIGABATRIN [Suspect]
     Active Substance: VIGABATRIN
     Indication: Infantile spasms
     Dosage: 4ML TWICE A DAY FOR 3 DAYS (1 PACKET IN 10 ML OF WATER), 8ML TWICE A DAY FOR NEXT 3 DAYS (1 PACKET I
     Route: 065
  2. ACTHAR [Suspect]
     Active Substance: CORTICOTROPIN
     Indication: Product used for unknown indication
     Dosage: UNK
     Route: 065
     Dates: start: 20230519

REACTIONS (1)
  - Illness [Unknown]
